FAERS Safety Report 4539645-7 (Version None)
Quarter: 2004Q4

REPORT INFORMATION
  Report Type: 
  Country: None (occurrence: None)
  Receive Date: 20041228
  Receipt Date: 20010405
  Transmission Date: 20050328
  Serious: Yes (Hospitalization, Disabling)
  Sender: FDA-Public Use
  Company Number: NO-MERCK-01047017

PATIENT
  Age: 39 Year
  Sex: Male

DRUGS (2)
  1. ZOCOR [Suspect]
     Indication: HYPERCHOLESTEROLAEMIA
     Route: 048
     Dates: start: 19950411, end: 20010130
  2. ZOCOR [Suspect]
     Route: 048
     Dates: start: 20010131, end: 20010201

REACTIONS (11)
  - ANTINUCLEAR ANTIBODY POSITIVE [None]
  - BASEDOW'S DISEASE [None]
  - BLOOD CREATININE INCREASED [None]
  - CHEST PAIN [None]
  - COUGH [None]
  - DIABETES MELLITUS NON-INSULIN-DEPENDENT [None]
  - FATIGUE [None]
  - HAEMATURIA [None]
  - MALAISE [None]
  - POLYMYOSITIS [None]
  - RHABDOMYOLYSIS [None]
